FAERS Safety Report 5386342-4 (Version None)
Quarter: 2007Q3

REPORT INFORMATION
  Report Type: 
  Country: None (occurrence: None)
  Receive Date: 20070705
  Receipt Date: 20070705
  Transmission Date: 20080115
  Serious: No
  Sender: FDA-Public Use
  Company Number: None

PATIENT
  Sex: Female

DRUGS (1)
  1. HYDROXYCHLOROQUINE TABS 698; 200MG; WATSON [Suspect]
     Dosage: TAKE 2 TABLETS BY MOUTH AT BEDTIME

REACTIONS (1)
  - PHARMACEUTICAL PRODUCT COMPLAINT [None]
